FAERS Safety Report 8363264-8 (Version None)
Quarter: 2012Q2

REPORT INFORMATION
  Report Type: 
  Country: None (occurrence: None)
  Receive Date: 20120514
  Receipt Date: 20120503
  Transmission Date: 20120825
  Serious: Yes (Disabling)
  Sender: FDA-Public Use
  Company Number: 1278336

PATIENT
  Age: 48 Year
  Sex: Female
  Weight: 34.927 kg

DRUGS (10)
  1. FERROUS SULFATE TAB [Concomitant]
  2. (DOMPERIDONE) [Concomitant]
  3. OMEPRAZOLE [Concomitant]
  4. ONDANSETRON [Concomitant]
  5. DEXAMETHASONE [Concomitant]
  6. RANITIDINE [Concomitant]
  7. CARBOPLATIN [Suspect]
     Indication: OVARIAN CANCER
     Dosage: 740 MG EVERY 21 DAYS (5 CYCLES), UNKNOWN
     Route: 042
     Dates: start: 20110801, end: 20111107
  8. ACETAMINOPHEN [Concomitant]
  9. (CODEINE PHOSPHATE) [Concomitant]
  10. PACLITAXEL [Concomitant]

REACTIONS (6)
  - OPTIC ATROPHY [None]
  - VISION BLURRED [None]
  - DRUG HYPERSENSITIVITY [None]
  - PAPILLOEDEMA [None]
  - RETINAL HAEMORRHAGE [None]
  - VISUAL ACUITY REDUCED [None]
